FAERS Safety Report 8999213 (Version 1)
Quarter: 2013Q1

REPORT INFORMATION
  Report Type: Spontaneous
  Country: IT (occurrence: IT)
  Receive Date: 20130103
  Receipt Date: 20130103
  Transmission Date: 20140127
  Serious: Yes (Hospitalization)
  Sender: FDA-Public Use
  Company Number: IT-ELI_LILLY_AND_COMPANY-IT201212007223

PATIENT
  Age: 68 Year
  Sex: Female

DRUGS (5)
  1. XERISTAR [Suspect]
     Dosage: 30 MG, QD
     Route: 048
     Dates: start: 20120530, end: 20120531
  2. CARVEDILOL [Concomitant]
  3. ESOMEPRAZOLE SODIUM [Concomitant]
  4. ENALAPRIL + HIDROCLOROTIAZIDA [Concomitant]
     Dosage: 1 DF, UNK
  5. BROTIZOLAM [Concomitant]
     Dosage: 0.25 MG, UNK

REACTIONS (5)
  - Chest discomfort [Recovered/Resolved]
  - Headache [Recovered/Resolved]
  - Malaise [Recovered/Resolved]
  - Eructation [Recovered/Resolved]
  - Hypertension [Recovered/Resolved]
